FAERS Safety Report 8930227 (Version 1)
Quarter: 2012Q4

REPORT INFORMATION
  Report Type: 
  Country: US (occurrence: US)
  Receive Date: 20121128
  Receipt Date: 20121128
  Transmission Date: 20130627
  Serious: No
  Sender: FDA-Public Use
  Company Number: US-PFIZER INC-2012295219

PATIENT
  Age: 42 Year
  Sex: Female

DRUGS (6)
  1. ZOLOFT [Suspect]
     Dosage: 100 mg, 1x/day
     Route: 048
  2. TOPAMAX [Concomitant]
     Dosage: UNK
  3. DEPAKOTE [Concomitant]
     Dosage: UNK
  4. ULTRAM [Concomitant]
     Dosage: UNK
  5. PROMETHAZINE [Concomitant]
     Dosage: UNK
  6. MAXALT [Concomitant]
     Dosage: UNK

REACTIONS (1)
  - Migraine [Unknown]
